FAERS Safety Report 10248168 (Version 1)
Quarter: 2014Q2

REPORT INFORMATION
  Report Type: Spontaneous
  Country: DE (occurrence: DE)
  Receive Date: 20140620
  Receipt Date: 20140620
  Transmission Date: 20141212
  Serious: No
  Sender: FDA-Public Use
  Company Number: DE-MYLANLABS-2014S1013548

PATIENT
  Age: 77 Year
  Sex: Male

DRUGS (2)
  1. QUETIAPIN [Suspect]
     Indication: HALLUCINATION
     Route: 048
     Dates: start: 20140303, end: 20140428
  2. MADOPAR [Concomitant]
     Indication: PARKINSON^S DISEASE
     Dates: start: 2013

REACTIONS (2)
  - Jaundice [Recovering/Resolving]
  - Confusional state [Recovering/Resolving]
